FAERS Safety Report 9562291 (Version 2)
Quarter: 2013Q4

REPORT INFORMATION
  Report Type: Spontaneous
  Country: AT (occurrence: AT)
  Receive Date: 20130927
  Receipt Date: 20131017
  Transmission Date: 20140711
  Serious: Yes (Other)
  Sender: FDA-Public Use
  Company Number: AT-009507513-1309AUT009261

PATIENT
  Age: 54 Year
  Sex: Male

DRUGS (3)
  1. RIBAVIRIN [Suspect]
     Indication: HEPATITIS C
  2. INTERFERON (UNSPECIFIED) [Suspect]
     Indication: HEPATITIS C
  3. BOCEPREVIR [Suspect]
     Indication: HEPATITIS C

REACTIONS (4)
  - Influenza like illness [Unknown]
  - General physical health deterioration [Unknown]
  - Pyrexia [Unknown]
  - No therapeutic response [Unknown]
